FAERS Safety Report 25289973 (Version 5)
Quarter: 2025Q4

REPORT INFORMATION
  Report Type: Report from Study
  Country: CA (occurrence: CA)
  Receive Date: 20250509
  Receipt Date: 20251118
  Transmission Date: 20260118
  Serious: Yes (Hospitalization)
  Sender: SAMSUNG BIOEPIS
  Company Number: CA-SAMSUNG BIOEPIS-SB-2025-15888

PATIENT
  Age: 22 Year
  Sex: Female
  Weight: 69 kg

DRUGS (7)
  1. RENFLEXIS [Suspect]
     Active Substance: INFLIXIMAB-ABDA
     Indication: Crohn^s disease
     Route: 042
     Dates: start: 20250121
  2. RENFLEXIS [Suspect]
     Active Substance: INFLIXIMAB-ABDA
     Route: 042
     Dates: start: 20250708
  3. RENFLEXIS [Suspect]
     Active Substance: INFLIXIMAB-ABDA
     Route: 042
     Dates: start: 20250429
  4. RENFLEXIS [Suspect]
     Active Substance: INFLIXIMAB-ABDA
     Route: 042
  5. CHOLECALCIFEROL [Concomitant]
     Active Substance: CHOLECALCIFEROL
     Indication: Product used for unknown indication
  6. VITAMIN B12 [Concomitant]
     Active Substance: CYANOCOBALAMIN
     Indication: Product used for unknown indication
  7. PANTOPRAZOLE [Concomitant]
     Active Substance: PANTOPRAZOLE
     Indication: Product used for unknown indication
     Route: 048

REACTIONS (8)
  - Vomiting [Recovered/Resolved]
  - Abdominal pain upper [Unknown]
  - Diarrhoea [Unknown]
  - Asthenia [Unknown]
  - Crohn^s disease [Unknown]
  - Abdominal pain [Not Recovered/Not Resolved]
  - Therapeutic response shortened [Unknown]
  - Product use issue [Unknown]

NARRATIVE: CASE EVENT DATE: 20250401
